FAERS Safety Report 7949539-2 (Version None)
Quarter: 2011Q4

REPORT INFORMATION
  Report Type: 
  Country: None (occurrence: None)
  Receive Date: 20111130
  Receipt Date: 20111121
  Transmission Date: 20120403
  Serious: Yes (Hospitalization, Other)
  Sender: FDA-Public Use
  Company Number: US-BAYER-2011-098498

PATIENT
  Age: 19 Year
  Sex: Female
  Weight: 59.864 kg

DRUGS (5)
  1. YAZ [Suspect]
     Indication: ACNE
     Dosage: UNK
     Dates: start: 20060801, end: 20070301
  2. YAZ [Suspect]
     Indication: PREMENSTRUAL SYNDROME
  3. ORTHO-NOVUM 7/7/7-21 [Concomitant]
  4. YASMIN [Suspect]
     Indication: PREMENSTRUAL SYNDROME
  5. YASMIN [Suspect]
     Indication: ACNE
     Dosage: UNK
     Dates: start: 20070401, end: 20080301

REACTIONS (4)
  - EMOTIONAL DISTRESS [None]
  - PAIN [None]
  - GALLBLADDER DISORDER [None]
  - CHOLECYSTITIS CHRONIC [None]
